FAERS Safety Report 9519810 (Version 3)
Quarter: 2013Q3

REPORT INFORMATION
  Report Type: Spontaneous
  Country: JP (occurrence: JP)
  Receive Date: 20130912
  Receipt Date: 20130927
  Transmission Date: 20140515
  Serious: Yes (Hospitalization)
  Sender: FDA-Public Use
  Company Number: JP-EISAI INC-E2020-12836-SPO-JP

PATIENT
  Age: 85 Year
  Sex: Female

DRUGS (5)
  1. ARICEPT [Suspect]
     Indication: DEMENTIA ALZHEIMER^S TYPE
     Route: 048
     Dates: end: 20130903
  2. SEROQUEL [Suspect]
     Indication: PRODUCT USED FOR UNKNOWN INDICATION
     Dosage: UNKNOWN
     Route: 048
     Dates: end: 20130903
  3. UNISIA [Concomitant]
     Route: 048
     Dates: end: 20130903
  4. SALUMOSIN [Concomitant]
     Route: 048
     Dates: end: 20130903
  5. ALSETIN [Concomitant]
     Route: 048
     Dates: end: 20130903

REACTIONS (4)
  - Depressed level of consciousness [Recovered/Resolved]
  - Miosis [Recovering/Resolving]
  - Vomiting [Recovered/Resolved]
  - Bradycardia [Recovering/Resolving]
